FAERS Safety Report 17173361 (Version 1)
Quarter: 2019Q4

REPORT INFORMATION
  Report Type: Spontaneous
  Country: US (occurrence: US)
  Receive Date: 20191218
  Receipt Date: 20191218
  Transmission Date: 20200122
  Serious: No
  Sender: FDA-Public Use
  Company Number: None

PATIENT
  Age: 56 Year
  Sex: Female
  Weight: 81 kg

DRUGS (8)
  1. LEVOTHYROXINE 50MG [Concomitant]
     Active Substance: LEVOTHYROXINE
  2. BENADRYL [Concomitant]
     Active Substance: DIPHENHYDRAMINE HYDROCHLORIDE
  3. BUPROPION HYDROCHLORIDE XL 300MG TAB ACT [Suspect]
     Active Substance: BUPROPION HYDROCHLORIDE
     Indication: BIPOLAR DISORDER
     Dosage: ?          QUANTITY:1 TABLET(S);?
     Route: 048
     Dates: start: 20160101
  4. SUMATRIPTAN 100MG TAB AUR [Suspect]
     Active Substance: SUMATRIPTAN SUCCINATE
     Indication: MIGRAINE
     Dosage: ?          QUANTITY:1 TABLET(S);?
     Route: 048
     Dates: start: 20191213, end: 20191213
  5. GABAPENTIN 600MG [Concomitant]
     Active Substance: GABAPENTIN
  6. OXCARBAZAPINE 600 MG [Concomitant]
  7. LAMOTRIGINE 200MG [Concomitant]
     Active Substance: LAMOTRIGINE
  8. TART CHERRY EXTRACT [Concomitant]

REACTIONS (8)
  - Hypersomnia [None]
  - Serotonin syndrome [None]
  - Nausea [None]
  - Vomiting [None]
  - Diarrhoea [None]
  - Chills [None]
  - Disorientation [None]
  - Feeling of body temperature change [None]

NARRATIVE: CASE EVENT DATE: 20191213
